FAERS Safety Report 7007625-8 (Version None)
Quarter: 2010Q3

REPORT INFORMATION
  Report Type: 
  Country: None (occurrence: None)
  Receive Date: 20100922
  Receipt Date: 20100914
  Transmission Date: 20110219
  Serious: Yes (Hospitalization)
  Sender: FDA-Public Use
  Company Number: CH-PFIZER INC-2010115797

PATIENT
  Age: 88 Year
  Sex: Male

DRUGS (11)
  1. SORTIS [Suspect]
     Indication: HYPERCHOLESTEROLAEMIA
     Dosage: 10-20MG, 1X/DAY
     Dates: end: 20091104
  2. SORTIS [Suspect]
     Dosage: 80 MG, 1X/DAY
     Dates: start: 20091105, end: 20091113
  3. NORVASC [Suspect]
     Dosage: 5 MG, UNK
     Route: 048
     Dates: start: 20091105, end: 20091113
  4. PERINDOPRIL ARGININE [Suspect]
     Dosage: 2.5 MG, 1X/DAY
     Route: 048
     Dates: start: 20091105, end: 20091113
  5. PRADIF [Concomitant]
     Dosage: 400 UG, 1X/DAY
  6. ASPIRIN [Concomitant]
     Dosage: 100 MG, 1X/DAY
     Route: 048
  7. PLAVIX [Concomitant]
     Dosage: 75 MG, 1X/DAY
     Route: 048
  8. PHYSIOTENS [Concomitant]
     Dosage: 0.2 MG, 2X/DAY
  9. NITRODERM [Concomitant]
     Dosage: 5 MG, 1X/DAY
     Route: 061
  10. NOVORAPID [Concomitant]
     Dosage: 4 IU, 1X/DAY
  11. METOPROLOL SUCCINATE [Concomitant]
     Dosage: 25 MG, 1X/DAY
     Route: 048

REACTIONS (1)
  - MIXED LIVER INJURY [None]
